FAERS Safety Report 10598167 (Version 1)
Quarter: 2014Q4

REPORT INFORMATION
  Report Type: Spontaneous
  Country: DE (occurrence: DE)
  Receive Date: 20141121
  Receipt Date: 20141121
  Transmission Date: 20150529
  Serious: Yes (Other)
  Sender: FDA-Public Use
  Company Number: DE-PFIZER INC-2014317628

PATIENT
  Age: 75 Year
  Sex: Female

DRUGS (3)
  1. TAFIL [Suspect]
     Active Substance: ALPRAZOLAM
     Indication: STRESS
     Dosage: UNK
     Dates: start: 20100312
  2. TAFIL [Suspect]
     Active Substance: ALPRAZOLAM
     Indication: AGITATION
  3. TAFIL [Suspect]
     Active Substance: ALPRAZOLAM
     Indication: ANXIETY

REACTIONS (7)
  - Urinary retention [Unknown]
  - Dyspnoea [Unknown]
  - Ileus [Unknown]
  - Adhesion [Unknown]
  - Peritonitis [Unknown]
  - Constipation [Unknown]
  - Gastrointestinal disorder [Unknown]

NARRATIVE: CASE EVENT DATE: 20130407
